FAERS Safety Report 7507439-6 (Version None)
Quarter: 2011Q2

REPORT INFORMATION
  Report Type: 
  Country: None (occurrence: None)
  Receive Date: 20110526
  Receipt Date: 20110516
  Transmission Date: 20111010
  Serious: Yes (Hospitalization, Other)
  Sender: FDA-Public Use
  Company Number: PHHY2011US41890

PATIENT
  Age: 13 Year
  Sex: Female

DRUGS (3)
  1. NORTRIPTYLINE HCL [Concomitant]
     Dosage: UNK UKN, UNK
  2. AMITRIPTYLINE HCL [Suspect]
     Dosage: UNK UKN, UNK
  3. PROPOFOL [Concomitant]
     Dosage: UNK UKN, UNK

REACTIONS (10)
  - TACHYCARDIA [None]
  - CARDIAC ARREST [None]
  - COMA [None]
  - OVERDOSE [None]
  - CONVULSION [None]
  - ELECTROCARDIOGRAM QRS COMPLEX PROLONGED [None]
  - RESPIRATORY RATE DECREASED [None]
  - THROMBOPHLEBITIS [None]
  - PANCREATITIS [None]
  - TORSADE DE POINTES [None]
